FAERS Safety Report 20819421 (Version 1)
Quarter: 2022Q2

REPORT INFORMATION
  Report Type: Spontaneous
  Country: US (occurrence: None)
  Receive Date: 20220511
  Receipt Date: 20220511
  Transmission Date: 20220721
  Serious: Yes (unspecified)
  Sender: FDA-Public Use
  Company Number: None

PATIENT
  Age: 69 Year
  Sex: Female
  Weight: 59.1 kg

DRUGS (4)
  1. PACLITAXEL [Suspect]
     Active Substance: PACLITAXEL
     Indication: Vulval cancer
     Dosage: OTHER FREQUENCY : EVERY 7 DAYS;?
     Route: 042
     Dates: start: 20220503
  2. GRANISETRON [Concomitant]
     Active Substance: GRANISETRON
     Dates: start: 20201015
  3. DEXAMETHASONE [Concomitant]
     Active Substance: DEXAMETHASONE
     Dates: start: 20201015
  4. FERRIC CARBOXYMALTOSE [Concomitant]
     Active Substance: FERRIC CARBOXYMALTOSE
     Dates: start: 20220503

REACTIONS (8)
  - Chills [None]
  - Tremor [None]
  - Rhonchi [None]
  - Chills [None]
  - Dyspnoea [None]
  - Hypoxia [None]
  - Musculoskeletal chest pain [None]
  - Infusion related reaction [None]

NARRATIVE: CASE EVENT DATE: 20220503
